FAERS Safety Report 18586874 (Version 1)
Quarter: 2020Q4

REPORT INFORMATION
  Report Type: Report from Study
  Country: ES (occurrence: ES)
  Receive Date: 20201207
  Receipt Date: 20201207
  Transmission Date: 20210114
  Serious: Yes (Other)
  Sender: FDA-Public Use
  Company Number: ES-SA-2020SA348120

PATIENT

DRUGS (9)
  1. CEFTRIAXONE. [Concomitant]
     Active Substance: CEFTRIAXONE
     Indication: COVID-19
     Dosage: 2 G
     Route: 042
     Dates: start: 20200926, end: 20201002
  2. FLUMIL [FLUCONAZOLE] [Concomitant]
     Indication: COVID-19
     Dosage: 1.8 G
     Route: 048
     Dates: start: 20200925, end: 20201002
  3. FAMOTIDINE. [Concomitant]
     Active Substance: FAMOTIDINE
     Indication: PROPHYLAXIS
     Dosage: 40 MG
     Route: 048
     Dates: start: 20200926, end: 20201007
  4. PRAVASTATINA [PRAVASTATIN] [Concomitant]
     Indication: PROPHYLAXIS
     Dosage: 40 MG
     Route: 048
     Dates: start: 20200927, end: 20201026
  5. AZITROMICIN [Concomitant]
     Active Substance: AZITHROMYCIN
     Indication: COVID-19
     Dosage: 500 MG
     Route: 048
     Dates: start: 20200925, end: 20200927
  6. REMDESIVIR. [Concomitant]
     Active Substance: REMDESIVIR
     Indication: COVID-19
     Dosage: 100 MG
     Route: 048
     Dates: start: 20200927, end: 20201001
  7. SARILUMAB [Suspect]
     Active Substance: SARILUMAB
     Indication: COVID-19
     Dosage: 200 MG, 1X
     Route: 042
     Dates: start: 20200928, end: 20200929
  8. DEXAMETASON [DEXAMETHASONE] [Concomitant]
     Active Substance: DEXAMETHASONE
     Indication: COVID-19
     Dosage: 6 MG
     Route: 048
     Dates: start: 20200928, end: 20201004
  9. HIBOR [Concomitant]
     Indication: ANTICOAGULANT THERAPY
     Dosage: 3500 IU
     Route: 058
     Dates: start: 20200926, end: 20201007

REACTIONS (1)
  - Alanine aminotransferase increased [Recovered/Resolved]

NARRATIVE: CASE EVENT DATE: 20200929
